FAERS Safety Report 7630505-1 (Version None)
Quarter: 2011Q3

REPORT INFORMATION
  Report Type: 
  Country: None (occurrence: None)
  Receive Date: 20110722
  Receipt Date: 20110715
  Transmission Date: 20111222
  Serious: Yes (Other)
  Sender: FDA-Public Use
  Company Number: US-PFIZER INC-2011052833

PATIENT
  Sex: Female
  Weight: 56.689 kg

DRUGS (8)
  1. GEODON [Suspect]
     Dosage: 40 MG, 1X/DAY
     Dates: start: 20110101, end: 20110130
  2. GEODON [Suspect]
     Indication: PANIC DISORDER
     Dosage: 40 MG, 1X/DAY
     Route: 048
     Dates: start: 20110110, end: 20110117
  3. GEODON [Suspect]
     Dosage: 80 MG, 1X/DAY
     Dates: start: 20110101, end: 20110101
  4. GEODON [Suspect]
     Indication: MAJOR DEPRESSION
     Dosage: 40 MG, 1X/DAY
     Route: 048
     Dates: start: 20101220, end: 20101224
  5. PRISTIQ [Suspect]
     Indication: DEPRESSION
     Dosage: 200 MG, 1X/DAY
     Route: 048
     Dates: end: 20110130
  6. GEODON [Suspect]
     Indication: EATING DISORDER
     Dosage: 40 MG, 2X/DAY
     Route: 048
     Dates: start: 20110121, end: 20110101
  7. GEODON [Suspect]
     Indication: ANXIETY
     Dosage: 80 MG, 2X/DAY
     Route: 048
     Dates: start: 20110101, end: 20110101
  8. ATIVAN [Concomitant]
     Indication: DEPRESSION
     Dosage: 0.5 MG, 3X/DAY, AS NEEDED
     Route: 048

REACTIONS (14)
  - BLEPHAROSPASM [None]
  - TACHYPHRENIA [None]
  - OROMANDIBULAR DYSTONIA [None]
  - PARANOIA [None]
  - HEADACHE [None]
  - FATIGUE [None]
  - TREMOR [None]
  - RESTLESSNESS [None]
  - MANIA [None]
  - ELECTROCARDIOGRAM QT PROLONGED [None]
  - RESTLESS LEGS SYNDROME [None]
  - DRUG INEFFECTIVE [None]
  - INSOMNIA [None]
  - PHARYNGITIS STREPTOCOCCAL [None]
